FAERS Safety Report 24326132 (Version 1)
Quarter: 2024Q3

REPORT INFORMATION
  Report Type: Report from Study
  Country: US (occurrence: US)
  Receive Date: 20240917
  Receipt Date: 20240917
  Transmission Date: 20241016
  Serious: Yes (Hospitalization, Other)
  Sender: ABBVIE
  Company Number: US-ABBVIE-5908968

PATIENT
  Age: 82 Year
  Sex: Male
  Weight: 78 kg

DRUGS (1)
  1. RINVOQ [Suspect]
     Active Substance: UPADACITINIB
     Indication: Colitis ulcerative
     Route: 048
     Dates: start: 2024

REACTIONS (8)
  - Spinal osteoarthritis [Not Recovered/Not Resolved]
  - Colitis ulcerative [Recovered/Resolved]
  - Urinary tract infection [Recovered/Resolved]
  - Pain [Recovering/Resolving]
  - Movement disorder [Not Recovered/Not Resolved]
  - Diarrhoea [Not Recovered/Not Resolved]
  - Urinary tract infection [Not Recovered/Not Resolved]
  - Decreased appetite [Not Recovered/Not Resolved]

NARRATIVE: CASE EVENT DATE: 20240801
